FAERS Safety Report 11475450 (Version 4)
Quarter: 2016Q1

REPORT INFORMATION
  Report Type: Spontaneous
  Country: US (occurrence: US)
  Receive Date: 20150909
  Receipt Date: 20160219
  Transmission Date: 20160525
  Serious: Yes (Other)
  Sender: FDA-Public Use
  Company Number: US-ASTRAZENECA-2015SE83653

PATIENT
  Age: 45 Year
  Sex: Female
  Weight: 81.6 kg

DRUGS (18)
  1. LISINOPRIL. [Suspect]
     Active Substance: LISINOPRIL
     Indication: BLOOD PRESSURE ABNORMAL
     Route: 048
  2. NEXIUM [Suspect]
     Active Substance: ESOMEPRAZOLE MAGNESIUM
     Route: 048
  3. PARAFONFORTE VSC [Concomitant]
     Indication: MUSCLE RELAXANT THERAPY
  4. IRON [Concomitant]
     Active Substance: IRON
     Indication: BLOOD DISORDER
  5. TYLENOL [Concomitant]
     Active Substance: ACETAMINOPHEN
     Indication: BACK PAIN
  6. PARAFONFORTE VSC [Concomitant]
     Indication: MYALGIA
  7. EFFEXOR XR [Concomitant]
     Active Substance: VENLAFAXINE HYDROCHLORIDE
     Indication: NERVOUS SYSTEM DISORDER
  8. HYDROCODONE BITARTRATE AND ACETAMINOPHEN [Concomitant]
     Active Substance: ACETAMINOPHEN\HYDROCODONE BITARTRATE
     Indication: BACK PAIN
     Dosage: 10/325MG TWICE DAILY
  9. CYCLOBENZAPRINE [Concomitant]
     Active Substance: CYCLOBENZAPRINE
     Indication: MUSCLE SPASMS
  10. LYRICA [Concomitant]
     Active Substance: PREGABALIN
     Indication: NERVE INJURY
  11. PARAFONFORTE VSC [Concomitant]
     Indication: ARTHRALGIA
  12. BYETTA [Suspect]
     Active Substance: EXENATIDE
     Indication: TYPE 2 DIABETES MELLITUS
     Dosage: TWO TIMES A DAY, BEFORE MEALS
     Route: 058
  13. SYNTHROID [Concomitant]
     Active Substance: LEVOTHYROXINE SODIUM
     Indication: THYROID DISORDER
  14. LANTUS SOLOSTAR [Concomitant]
     Active Substance: INSULIN GLARGINE
     Indication: DIABETES MELLITUS
     Dosage: 36 UNITS TWICE DAILY
     Route: 058
  15. NEXIUM [Suspect]
     Active Substance: ESOMEPRAZOLE MAGNESIUM
     Indication: GASTRIC DISORDER
     Route: 048
  16. GLUCOPHAGE [Concomitant]
     Active Substance: METFORMIN HYDROCHLORIDE
     Indication: DIABETES MELLITUS
  17. TOPROL XL [Suspect]
     Active Substance: METOPROLOL SUCCINATE
     Indication: BLOOD PRESSURE ABNORMAL
     Route: 048
  18. NOVOLOG [Concomitant]
     Active Substance: INSULIN ASPART
     Indication: DIABETES MELLITUS
     Dosage: DIABETES ON A SLIDING SCALE IF BLOOD SUGAR IS OVER 150 WITH EACH MEAL,
     Route: 058

REACTIONS (21)
  - Intervertebral disc protrusion [Unknown]
  - Intervertebral disc degeneration [Unknown]
  - Diabetes mellitus [Unknown]
  - Dry mouth [Unknown]
  - Dyspepsia [Unknown]
  - Carpal tunnel syndrome [Unknown]
  - Vomiting [Unknown]
  - Blood cholesterol increased [Unknown]
  - Visual acuity reduced [Unknown]
  - Feeding disorder [Unknown]
  - Malaise [Unknown]
  - Hypertension [Unknown]
  - Pain [Unknown]
  - Goitre [Unknown]
  - Gastric cyst [Unknown]
  - Arthritis [Unknown]
  - Abdominal pain upper [Unknown]
  - Diplopia [Unknown]
  - Irritable bowel syndrome [Unknown]
  - Thyroid disorder [Unknown]
  - Drug dose omission [Unknown]

NARRATIVE: CASE EVENT DATE: 1992
